FAERS Safety Report 10884808 (Version 3)
Quarter: 2015Q2

REPORT INFORMATION
  Report Type: Spontaneous
  Country: CH (occurrence: None)
  Receive Date: 20150227
  Receipt Date: 20150416
  Transmission Date: 20150821
  Serious: Yes (Other)
  Sender: FDA-Public Use
  Company Number: 20150108

PATIENT
  Age: 19 Year
  Sex: Female

DRUGS (1)
  1. FERINJECT [Suspect]
     Active Substance: FERRIC CARBOXYMALTOSE
     Indication: IRON DEFICIENCY
     Dosage: 500 MG, 1 IN 1 TOTAL
     Route: 041
     Dates: start: 20150210, end: 20150210

REACTIONS (10)
  - Pain in extremity [None]
  - Fatigue [None]
  - Nausea [None]
  - Pyrexia [None]
  - Chest discomfort [None]
  - Dizziness [None]
  - Diarrhoea [None]
  - Dyspnoea [None]
  - Infusion related reaction [None]
  - Headache [None]

NARRATIVE: CASE EVENT DATE: 20150210
